FAERS Safety Report 15487298 (Version 2)
Quarter: 2019Q1

REPORT INFORMATION
  Report Type: Report from Study
  Country: CA (occurrence: CA)
  Receive Date: 20181011
  Receipt Date: 20190109
  Transmission Date: 20190417
  Serious: Yes (Other)
  Sender: FDA-Public Use
  Company Number: CA-GLAXOSMITHKLINE-CA2018GSK171637

PATIENT
  Age: 34 Year
  Sex: Female

DRUGS (5)
  1. MEPOLIZUMAB [Suspect]
     Active Substance: MEPOLIZUMAB
     Indication: ASTHMA
     Dosage: 100 MG, (MONTHLY)
     Route: 042
  2. MEROPENEM. [Suspect]
     Active Substance: MEROPENEM
     Indication: PRODUCT USED FOR UNKNOWN INDICATION
     Dosage: UNK
     Route: 042
     Dates: start: 20180913
  3. NOVOQUININE [Suspect]
     Active Substance: QUININE SULFATE
     Indication: PSEUDOMONAS INFECTION
     Dosage: UNK
     Route: 048
  4. MEPOLIZUMAB [Suspect]
     Active Substance: MEPOLIZUMAB
     Dosage: 100 MG, (MONTHLY)
     Route: 042
  5. PREDNISONE. [Suspect]
     Active Substance: PREDNISONE
     Indication: PRODUCT USED FOR UNKNOWN INDICATION
     Dosage: 40 MG, EVERY 5 DAYS, AND SO ON

REACTIONS (6)
  - Vomiting [Unknown]
  - Ill-defined disorder [Unknown]
  - Sinusitis [Not Recovered/Not Resolved]
  - Injection site thrombosis [Unknown]
  - Pseudomonas infection [Unknown]
  - Diarrhoea [Unknown]

NARRATIVE: CASE EVENT DATE: 201806
